FAERS Safety Report 13390789 (Version 1)
Quarter: 2017Q1

REPORT INFORMATION
  Report Type: Spontaneous
  Country: DK (occurrence: DK)
  Receive Date: 20170331
  Receipt Date: 20170331
  Transmission Date: 20170429
  Serious: Yes (Other)
  Sender: FDA-Public Use
  Company Number: PHHY2017DK043712

PATIENT
  Age: 28 Year
  Sex: Male
  Weight: 84 kg

DRUGS (2)
  1. RIMACTAN [Suspect]
     Active Substance: RIFAMPIN
     Indication: TUBERCULOSIS
     Dosage: 600 MG, QD
     Route: 048
     Dates: start: 20120312
  2. ISONIAZID ^OBA^ [Suspect]
     Active Substance: ISONIAZID
     Indication: TUBERCULOSIS
     Dosage: 300 MG, QD, STYRKE: 300 MG
     Route: 048
     Dates: start: 20120312

REACTIONS (4)
  - Urine albumin/creatinine ratio increased [Unknown]
  - Renal impairment [Not Recovered/Not Resolved]
  - Hypertension [Unknown]
  - Proteinuria [Unknown]

NARRATIVE: CASE EVENT DATE: 20121001
